FAERS Safety Report 21924690 (Version 2)
Quarter: 2023Q1

REPORT INFORMATION
  Report Type: Spontaneous
  Country: JP (occurrence: JP)
  Receive Date: 20230130
  Receipt Date: 20230219
  Transmission Date: 20230417
  Serious: Yes (Hospitalization, Other)
  Sender: FDA-Public Use
  Company Number: JP-TAKEDA-2023TJP001159

PATIENT
  Age: 78 Year
  Sex: Female
  Weight: 44.2 kg

DRUGS (2)
  1. TRINTELLIX [Suspect]
     Active Substance: VORTIOXETINE HYDROBROMIDE
     Indication: Depression
     Dosage: 10 MILLIGRAM, QD
     Route: 048
     Dates: start: 20230120, end: 20230124
  2. LEVOCARNITINE [Concomitant]
     Active Substance: LEVOCARNITINE
     Indication: Muscle spasms
     Dosage: 500 MILLIGRAM, BID
     Route: 048
     Dates: start: 20221207

REACTIONS (1)
  - Inappropriate antidiuretic hormone secretion [Recovered/Resolved]

NARRATIVE: CASE EVENT DATE: 20230124
